FAERS Safety Report 11317240 (Version 3)
Quarter: 2015Q4

REPORT INFORMATION
  Report Type: Spontaneous
  Country: US (occurrence: US)
  Receive Date: 20150728
  Receipt Date: 20151203
  Transmission Date: 20160304
  Serious: Yes (Hospitalization, Other)
  Sender: FDA-Public Use
  Company Number: US-PFIZER INC-2015246802

PATIENT
  Age: 67 Year
  Sex: Female

DRUGS (9)
  1. AMITRIPTYLINE HCL [Concomitant]
     Active Substance: AMITRIPTYLINE
     Dosage: 10 MG, UNK
  2. DIOVAN [Concomitant]
     Active Substance: VALSARTAN
  3. SOMAVERT [Suspect]
     Active Substance: PEGVISOMANT
     Indication: ACROMEGALY
     Dosage: 30 MG, 1X/DAY
     Route: 058
     Dates: start: 20020101
  4. ESTROVEN [Concomitant]
     Active Substance: DIETARY SUPPLEMENT
  5. CINNAMON. [Concomitant]
     Active Substance: CINNAMON
  6. SYNTHROID [Concomitant]
     Active Substance: LEVOTHYROXINE SODIUM
  7. IRON [Concomitant]
     Active Substance: IRON
  8. IBUPROFEN. [Concomitant]
     Active Substance: IBUPROFEN
  9. VITAMIN D [Concomitant]
     Active Substance: CHOLECALCIFEROL

REACTIONS (4)
  - Gait disturbance [Unknown]
  - Arthritis [Unknown]
  - Osteoporosis [Unknown]
  - Arthralgia [Unknown]

NARRATIVE: CASE EVENT DATE: 20150909
